FAERS Safety Report 5614336-X (Version None)
Quarter: 2008Q1

REPORT INFORMATION
  Report Type: 
  Country: None (occurrence: None)
  Receive Date: 20080205
  Receipt Date: 20080115
  Transmission Date: 20080703
  Serious: Yes (Death)
  Sender: FDA-Public Use
  Company Number: US-SANOFI-SYNTHELABO-A03200800353

PATIENT

DRUGS (2)
  1. AMBIEN CR [Suspect]
     Dosage: UNK
     Route: 048
  2. ALCOHOL [Interacting]
     Dosage: UNK
     Route: 065

REACTIONS (1)
  - COMPLETED SUICIDE [None]
